FAERS Safety Report 17313955 (Version 1)
Quarter: 2020Q1

REPORT INFORMATION
  Report Type: Spontaneous
  Country: US (occurrence: US)
  Receive Date: 20200124
  Receipt Date: 20200124
  Transmission Date: 20200409
  Serious: Yes (Other)
  Sender: FDA-Public Use
  Company Number: NVSC2020US015847

PATIENT
  Age: 72 Year
  Sex: Female

DRUGS (2)
  1. VANCOMYCIN [Suspect]
     Active Substance: VANCOMYCIN
     Indication: MEDICAL DEVICE SITE INFECTION
     Dosage: UNK
     Route: 065
  2. CEFTRIAXONE. [Suspect]
     Active Substance: CEFTRIAXONE
     Indication: MEDICAL DEVICE SITE INFECTION
     Dosage: UNK
     Route: 065

REACTIONS (6)
  - Skin plaque [Unknown]
  - Pustule [Unknown]
  - Rash pruritic [Recovering/Resolving]
  - Blister [Unknown]
  - Linear IgA disease [Unknown]
  - Rash [Recovering/Resolving]
